FAERS Safety Report 5267229-4 (Version None)
Quarter: 2007Q1

REPORT INFORMATION
  Report Type: 
  Country: None (occurrence: None)
  Receive Date: 20070316
  Receipt Date: 20070309
  Transmission Date: 20070707
  Serious: Yes (Hospitalization)
  Sender: FDA-Public Use
  Company Number: JP-ROCHE-485537

PATIENT
  Age: 12 Year
  Sex: Male
  Weight: 51 kg

DRUGS (5)
  1. TAMIFLU [Suspect]
     Route: 048
     Dates: start: 20070222, end: 20070222
  2. TAMIFLU [Suspect]
     Route: 048
     Dates: start: 20070223, end: 20070223
  3. MEDICON [Concomitant]
     Indication: COUGH
     Route: 048
     Dates: start: 20070222, end: 20070223
  4. POLARAMINE [Concomitant]
     Route: 048
     Dates: start: 20070222, end: 20070223
  5. CALONAL [Concomitant]
     Route: 048
     Dates: start: 20070222, end: 20070223

REACTIONS (3)
  - ABNORMAL BEHAVIOUR [None]
  - CONTUSION [None]
  - FALL [None]
